FAERS Safety Report 8901754 (Version 1)
Quarter: 2012Q4

REPORT INFORMATION
  Report Type: Spontaneous
  Country: US (occurrence: None)
  Receive Date: 20121105
  Receipt Date: 20121105
  Transmission Date: 20130627
  Serious: Yes (Hospitalization, Other)
  Sender: FDA-Public Use
  Company Number: 2012P1061290

PATIENT
  Age: 76 Year
  Sex: Female

DRUGS (2)
  1. TERBUTALINE [Suspect]
     Indication: DYSPNEA
     Route: 055
  2. DEXAMETHASONE [Concomitant]

REACTIONS (3)
  - Stress cardiomyopathy [None]
  - Lung disorder [None]
  - Condition aggravated [None]
